FAERS Safety Report 19161739 (Version 1)
Quarter: 2021Q2

REPORT INFORMATION
  Report Type: Spontaneous
  Country: US (occurrence: US)
  Receive Date: 20210419
  Receipt Date: 20210419
  Transmission Date: 20210717
  Serious: Yes (Other)
  Sender: FDA-Public Use
  Company Number: None

PATIENT
  Age: 77 Year
  Sex: Female
  Weight: 63.5 kg

DRUGS (12)
  1. DICLOFENAC SODIUM TOPICAL GEL, 1% (NSAID) [Suspect]
     Active Substance: DICLOFENAC SODIUM
     Indication: FOOT FRACTURE
     Dosage: QUANITY/DOSAGE: MEASURED WITH PLASTIC GUIDE PROVIDED?FREQUENCY: TOTAL: 3X OVER ABOUT 20 HOURS
     Route: 061
     Dates: start: 20210407, end: 20210408
  2. AMLODIPINE [Concomitant]
     Active Substance: AMLODIPINE BESYLATE
  3. SPIRONOLACTONE. [Concomitant]
     Active Substance: SPIRONOLACTONE
  4. FISH OIL [Concomitant]
     Active Substance: FISH OIL
  5. FAMOTIDINE. [Concomitant]
     Active Substance: FAMOTIDINE
  6. D?AMPHETAMINE [Concomitant]
     Active Substance: DEXTROAMPHETAMINE
  7. DICLOFENAC SODIUM TOPICAL GEL, 1% (NSAID) [Suspect]
     Active Substance: DICLOFENAC SODIUM
     Indication: ARTHRITIS
     Dosage: QUANITY/DOSAGE: MEASURED WITH PLASTIC GUIDE PROVIDED?FREQUENCY: TOTAL: 3X OVER ABOUT 20 HOURS
     Route: 061
     Dates: start: 20210407, end: 20210408
  8. DICYCLOMINE [Concomitant]
     Active Substance: DICYCLOMINE HYDROCHLORIDE
  9. ASPIRIN. [Concomitant]
     Active Substance: ASPIRIN
  10. VITAMIN D [Concomitant]
     Active Substance: VITAMIN D NOS
  11. BIOTIN [Concomitant]
     Active Substance: BIOTIN
  12. GLUCOSAMINE [Concomitant]
     Active Substance: GLUCOSAMINE

REACTIONS (6)
  - Dysstasia [None]
  - Oedema peripheral [None]
  - Urinary retention [None]
  - Weight increased [None]
  - Gait disturbance [None]
  - Dyschezia [None]

NARRATIVE: CASE EVENT DATE: 20210408
